FAERS Safety Report 5807116-3 (Version None)
Quarter: 2008Q3

REPORT INFORMATION
  Report Type: 
  Country: None (occurrence: None)
  Receive Date: 20080711
  Receipt Date: 20080704
  Transmission Date: 20090109
  Serious: Yes (Hospitalization)
  Sender: FDA-Public Use
  Company Number: SE-BAYER-200821652GPV

PATIENT
  Age: 17 Year
  Sex: Female

DRUGS (1)
  1. CIPROFLOXACIN HCL [Suspect]
     Indication: CYSTITIS
     Route: 048
     Dates: start: 20080505, end: 20080515

REACTIONS (6)
  - ATAXIA [None]
  - DYSARTHRIA [None]
  - DYSGRAPHIA [None]
  - HEADACHE [None]
  - NYSTAGMUS [None]
  - VERTIGO [None]
